FAERS Safety Report 15722337 (Version 1)
Quarter: 2018Q4

REPORT INFORMATION
  Report Type: Spontaneous
  Country: US (occurrence: US)
  Receive Date: 20181213
  Receipt Date: 20181213
  Transmission Date: 20190205
  Serious: Yes (Hospitalization)
  Sender: FDA-Public Use
  Company Number: None

PATIENT
  Sex: Female

DRUGS (13)
  1. OSELTAMIVIR [Concomitant]
     Active Substance: OSELTAMIVIR
  2. DOXYCYCL HYC [Concomitant]
  3. LISINOPRIL. [Concomitant]
     Active Substance: LISINOPRIL
  4. HYDROCHLOROT [Concomitant]
     Active Substance: HYDROCHLOROTHIAZIDE
  5. IBRANCE [Suspect]
     Active Substance: PALBOCICLIB
     Indication: BREAST CANCER FEMALE
     Dosage: ?          OTHER FREQUENCY:QD X21, OFF 7;?
     Route: 048
     Dates: start: 20180720
  6. BENZONATATE. [Concomitant]
     Active Substance: BENZONATATE
  7. AMOX/K CLAV [Concomitant]
     Active Substance: AMOXICILLIN\CLAVULANATE POTASSIUM
  8. AMOXICILLIN. [Concomitant]
     Active Substance: AMOXICILLIN
  9. PROMETHAZINE [Concomitant]
     Active Substance: PROMETHAZINE\PROMETHAZINE HYDROCHLORIDE
  10. CEFDINIR. [Concomitant]
     Active Substance: CEFDINIR
  11. LEVOFLOXACIN. [Concomitant]
     Active Substance: LEVOFLOXACIN
  12. CETIRIZINE [Concomitant]
     Active Substance: CETIRIZINE HYDROCHLORIDE
  13. MUCINEX [Concomitant]
     Active Substance: GUAIFENESIN

REACTIONS (2)
  - Influenza [None]
  - Therapy cessation [None]
